FAERS Safety Report 4532995-X (Version None)
Quarter: 2004Q4

REPORT INFORMATION
  Report Type: 
  Country: None (occurrence: None)
  Receive Date: 20041206
  Receipt Date: 20041015
  Transmission Date: 20050328
  Serious: No
  Sender: FDA-Public Use
  Company Number: USA041081235

PATIENT
  Age: 60 Year
  Sex: Male

DRUGS (3)
  1. CYMBALTA [Suspect]
     Indication: DEPRESSION
     Dosage: 30 MG DAY
  2. OXYCONTIN [Concomitant]
  3. OXYFAST (OXYCODONE HYDROCHLORIDE) [Concomitant]

REACTIONS (4)
  - ANXIETY [None]
  - BLOOD PRESSURE INCREASED [None]
  - SENSORY DISTURBANCE [None]
  - TACHYCARDIA [None]
